FAERS Safety Report 11055929 (Version 1)
Quarter: 2015Q2

REPORT INFORMATION
  Report Type: Report from Study
  Country: US (occurrence: US)
  Receive Date: 20150422
  Receipt Date: 20150422
  Transmission Date: 20150821
  Serious: Yes (Hospitalization, Other)
  Sender: FDA-Public Use
  Company Number: US-GILEAD-2015-0149876

PATIENT
  Age: 54 Year
  Sex: Female

DRUGS (29)
  1. PRILOSEC [Concomitant]
     Active Substance: OMEPRAZOLE MAGNESIUM
  2. CLARITIN [Concomitant]
     Active Substance: LORATADINE
  3. FLONASE                            /00908302/ [Concomitant]
  4. TOPROL XL [Concomitant]
     Active Substance: METOPROLOL SUCCINATE
  5. REMODULIN [Suspect]
     Active Substance: TREPROSTINIL
     Indication: PRODUCT USED FOR UNKNOWN INDICATION
     Dosage: UNK
     Route: 065
  6. LEVBID [Concomitant]
     Active Substance: HYOSCYAMINE SULFATE
  7. TYLENOL [Concomitant]
     Active Substance: ACETAMINOPHEN
  8. PROAIR HFA [Concomitant]
     Active Substance: ALBUTEROL SULFATE
  9. ADVAIR HFA [Concomitant]
     Active Substance: FLUTICASONE PROPIONATE\SALMETEROL XINAFOATE
  10. ALDACTONE [Concomitant]
     Active Substance: SPIRONOLACTONE
  11. ADCIRCA [Suspect]
     Active Substance: TADALAFIL
     Indication: PRODUCT USED FOR UNKNOWN INDICATION
     Dosage: UNK
     Route: 065
  12. TUMS                               /07357001/ [Concomitant]
  13. LASIX [Concomitant]
     Active Substance: FUROSEMIDE
  14. MIDODRINE [Concomitant]
     Active Substance: MIDODRINE
  15. MELATONIN [Concomitant]
     Active Substance: MELATONIN
  16. ZOFRAN                             /00955301/ [Concomitant]
     Active Substance: ONDANSETRON HYDROCHLORIDE
  17. COMPAZINE                          /00013304/ [Concomitant]
  18. NYSTATIN. [Concomitant]
     Active Substance: NYSTATIN
  19. MAGNESIUM [Concomitant]
     Active Substance: MAGNESIUM
  20. SYNTHROID [Concomitant]
     Active Substance: LEVOTHYROXINE SODIUM
  21. GABAPENTIN. [Concomitant]
     Active Substance: GABAPENTIN
  22. POTASSIUM CHLORIDE. [Concomitant]
     Active Substance: POTASSIUM CHLORIDE
  23. BIAXIN [Concomitant]
     Active Substance: CLARITHROMYCIN
  24. AMBRISENTAN [Suspect]
     Active Substance: AMBRISENTAN
     Indication: PULMONARY ARTERIAL HYPERTENSION
     Dosage: 10 MG, QD
     Route: 065
     Dates: start: 20120410
  25. XANAX [Concomitant]
     Active Substance: ALPRAZOLAM
  26. METOLAZONE. [Concomitant]
     Active Substance: METOLAZONE
  27. FERROUS SULFATE [Concomitant]
     Active Substance: FERROUS SULFATE\FERROUS SULFATE, DRIED
  28. SINGULAIR [Concomitant]
     Active Substance: MONTELUKAST SODIUM
  29. DOPAMINE [Concomitant]
     Active Substance: DOPAMINE\DOPAMINE HYDROCHLORIDE

REACTIONS (1)
  - Pancreatitis [Unknown]
